FAERS Safety Report 7329482-2 (Version None)
Quarter: 2011Q1

REPORT INFORMATION
  Report Type: 
  Country: None (occurrence: None)
  Receive Date: 20110225
  Receipt Date: 20110225
  Transmission Date: 20110831
  Serious: Yes (Life-Threatening, Disabling)
  Sender: FDA-Public Use
  Company Number: None

PATIENT
  Age: 32 Year
  Sex: Female
  Weight: 135.1719 kg

DRUGS (1)
  1. LISINOPRIL [Suspect]
     Indication: HYPERTENSION
     Dosage: 5MG 1 TABLET DAILY PO
     Route: 048
     Dates: start: 20100914, end: 20110217

REACTIONS (3)
  - SWELLING FACE [None]
  - DRUG HYPERSENSITIVITY [None]
  - LIP SWELLING [None]
